FAERS Safety Report 7381812-1 (Version None)
Quarter: 2011Q1

REPORT INFORMATION
  Report Type: 
  Country: None (occurrence: None)
  Receive Date: 20110329
  Receipt Date: 20110316
  Transmission Date: 20110831
  Serious: Yes (Hospitalization, Other)
  Sender: FDA-Public Use
  Company Number: PHHY2011TW21815

PATIENT
  Age: 56 Year
  Sex: Female

DRUGS (4)
  1. METOCLOPRAMIDE [Concomitant]
     Dosage: 15 MG, DAILY
     Route: 048
  2. METOCLOPRAMIDE [Suspect]
     Indication: VOMITING
     Dosage: 20 MG, DAILY
     Route: 048
     Dates: start: 20031121
  3. CEPHALOSPORINES [Concomitant]
  4. METOCLOPRAMIDE [Suspect]
     Dosage: 15 MG, DAILY
     Route: 048

REACTIONS (19)
  - ANAEMIA [None]
  - MUSCLE RIGIDITY [None]
  - CHOREA [None]
  - BALANCE DISORDER [None]
  - DYSKINESIA [None]
  - KLEBSIELLA INFECTION [None]
  - GAIT DISTURBANCE [None]
  - DYSPHAGIA [None]
  - DYSSTASIA [None]
  - BLOOD UREA INCREASED [None]
  - ABASIA [None]
  - BLOOD CREATININE INCREASED [None]
  - BLOOD PRESSURE INCREASED [None]
  - PERITONITIS BACTERIAL [None]
  - RENAL IMPAIRMENT [None]
  - COMPUTERISED TOMOGRAM ABNORMAL [None]
  - MASKED FACIES [None]
  - DYSTONIA [None]
  - GRIMACING [None]
